FAERS Safety Report 19477100 (Version 2)
Quarter: 2021Q3

REPORT INFORMATION
  Report Type: Spontaneous
  Country: CN (occurrence: CN)
  Receive Date: 20210630
  Receipt Date: 20210713
  Transmission Date: 20211014
  Serious: Yes (Death)
  Sender: FDA-Public Use
  Company Number: CN-UNICHEM PHARMACEUTICALS (USA) INC-UCM202106-000571

PATIENT
  Age: 42 Year
  Sex: Male

DRUGS (4)
  1. BIAPENEM PLUS LINEZOLID [Concomitant]
     Indication: ANTI-INFECTIVE THERAPY
     Dosage: UNKNOWN
  2. DIVALPROEX SODIUM. [Suspect]
     Active Substance: DIVALPROEX SODIUM
  3. CEFTRIAXONE PLUS VANCOMYCIN [Concomitant]
     Indication: ANTI-INFECTIVE THERAPY
     Dosage: UNKNOWN
  4. DIVALPROEX SODIUM. [Suspect]
     Active Substance: DIVALPROEX SODIUM
     Indication: EPILEPSY

REACTIONS (9)
  - Brain oedema [Fatal]
  - Renal impairment [Fatal]
  - Hepatic failure [Fatal]
  - Headache [Fatal]
  - Toxicity to various agents [Fatal]
  - Coma [Fatal]
  - Drug-induced liver injury [Fatal]
  - Thrombotic microangiopathy [Fatal]
  - Vomiting [Fatal]
